FAERS Safety Report 5615796-0 (Version None)
Quarter: 2008Q1

REPORT INFORMATION
  Report Type: 
  Country: None (occurrence: None)
  Receive Date: 20080206
  Receipt Date: 20080131
  Transmission Date: 20080703
  Serious: Yes (Death, Hospitalization)
  Sender: FDA-Public Use
  Company Number: GB-AVENTIS-200810948GDDC

PATIENT
  Age: 76 Year
  Sex: Male
  Weight: 66 kg

DRUGS (4)
  1. DOCETAXEL [Suspect]
     Indication: PROSTATE CANCER
     Route: 042
     Dates: start: 20071210, end: 20080107
  2. PREDNISOLONE [Suspect]
     Indication: PROSTATE CANCER
     Route: 048
     Dates: start: 20071211, end: 20080113
  3. ZOLEDRONIC ACID [Suspect]
     Indication: PROSTATE CANCER
     Dates: end: 20080107
  4. STRONTIUM CHLORIDE SR-89 [Suspect]
     Indication: PROSTATE CANCER

REACTIONS (4)
  - HAEMOGLOBIN [None]
  - LEFT VENTRICULAR FAILURE [None]
  - MYOCARDIAL INFARCTION [None]
  - NEUTROPENIC INFECTION [None]
